FAERS Safety Report 5311631-9 (Version None)
Quarter: 2007Q2

REPORT INFORMATION
  Report Type: 
  Country: None (occurrence: None)
  Receive Date: 20070426
  Receipt Date: 20070426
  Transmission Date: 20071010
  Serious: Yes (Hospitalization)
  Sender: FDA-Public Use
  Company Number: None

PATIENT
  Sex: Female

DRUGS (2)
  1. CELEBREX [Suspect]
     Indication: BACK PAIN
     Dosage: 200 MG TWICE DAILY PO
     Route: 048
  2. CELEBREX [Suspect]
     Indication: ROAD TRAFFIC ACCIDENT
     Dosage: 200 MG TWICE DAILY PO
     Route: 048

REACTIONS (2)
  - EXPOSURE TO COMMUNICABLE DISEASE [None]
  - HEPATITIS ACUTE [None]
